FAERS Safety Report 20615859 (Version 1)
Quarter: 2022Q1

REPORT INFORMATION
  Report Type: Spontaneous
  Country: US (occurrence: US)
  Receive Date: 20220321
  Receipt Date: 20220321
  Transmission Date: 20220424
  Serious: No
  Sender: FDA-Public Use
  Company Number: US-SA-SAC20220316002035

PATIENT
  Age: 57 Year
  Sex: Female

DRUGS (3)
  1. AUBAGIO [Suspect]
     Active Substance: TERIFLUNOMIDE
     Indication: Relapsing-remitting multiple sclerosis
     Dosage: 14 MG, QD
     Route: 048
     Dates: start: 20210827
  2. AMPYRA [Concomitant]
     Active Substance: DALFAMPRIDINE
  3. COPAXONE [Concomitant]
     Active Substance: GLATIRAMER ACETATE

REACTIONS (2)
  - Urinary tract disorder [Unknown]
  - Cyst [Unknown]

NARRATIVE: CASE EVENT DATE: 20210101
